FAERS Safety Report 4616250-5 (Version None)
Quarter: 2005Q1

REPORT INFORMATION
  Report Type: 
  Country: None (occurrence: None)
  Receive Date: 20050321
  Receipt Date: 20050311
  Transmission Date: 20050727
  Serious: Yes (Hospitalization)
  Sender: FDA-Public Use
  Company Number: SUS1-2005-00189

PATIENT
  Age: 10 Year
  Sex: Male
  Weight: 25 kg

DRUGS (2)
  1. ADDERALL 10 [Suspect]
     Indication: ATTENTION DEFICIT/HYPERACTIVITY DISORDER
     Dosage: 10 MG, 1X/DAY:QD, ORAL
     Route: 048
     Dates: start: 20050228, end: 20050305
  2. AMFETAMIN ASP W/AMFET SUL/DEXAM SA/DEXAM SUL (DEXAMFETAMINE SULFATE, A [Concomitant]

REACTIONS (1)
  - STEVENS-JOHNSON SYNDROME [None]
